FAERS Safety Report 9460274 (Version 1)
Quarter: 2013Q3

REPORT INFORMATION
  Report Type: Spontaneous
  Country: FR (occurrence: FR)
  Receive Date: 20130815
  Receipt Date: 20130815
  Transmission Date: 20140515
  Serious: Yes (Death)
  Sender: FDA-Public Use
  Company Number: FR-JNJFOC-20130806290

PATIENT
  Age: 84 Year
  Sex: Female

DRUGS (5)
  1. REMICADE [Suspect]
     Indication: RHEUMATOID ARTHRITIS
     Dosage: 5 YEARS
     Route: 042
     Dates: start: 2007, end: 20120911
  2. CORTICOSTEROID [Suspect]
     Indication: PRODUCT USED FOR UNKNOWN INDICATION
     Route: 065
  3. DUROGESIC [Concomitant]
     Route: 065
     Dates: start: 2012, end: 20121130
  4. CACIT VITAMINE D3 [Concomitant]
     Dosage: CONFLICTINGLY REPORTED AS 2013 (FUTURE DATE)
     Route: 065
     Dates: end: 20121130
  5. ACLASTA [Concomitant]
     Indication: OSTEOPOROSIS
     Route: 065

REACTIONS (1)
  - Endocarditis staphylococcal [Fatal]
